FAERS Safety Report 4589573-6 (Version None)
Quarter: 2005Q1

REPORT INFORMATION
  Report Type: 
  Country: None (occurrence: None)
  Receive Date: 20050217
  Receipt Date: 20050208
  Transmission Date: 20050727
  Serious: Yes (Life-Threatening, Hospitalization, Disabling, Other)
  Sender: FDA-Public Use
  Company Number: 2004-12-0932

PATIENT
  Age: 46 Year
  Sex: Female

DRUGS (4)
  1. PEG-INTERFERON ALFA-2B INJECTABLE POWDER [Suspect]
     Indication: HEPATITIS C
     Dosage: 100 MCG SUBCUTANEOUS
     Route: 058
     Dates: start: 20040701
  2. RIBAVIRIN [Suspect]
     Indication: HEPATITIS C
     Dosage: 1000 MG ORAL
     Route: 048
     Dates: start: 20040701
  3. INSULIN [Concomitant]
  4. CELEXA [Concomitant]

REACTIONS (4)
  - CEREBROVASCULAR ACCIDENT [None]
  - DISEASE RECURRENCE [None]
  - HAEMOGLOBIN ABNORMAL [None]
  - THROMBOCYTOPENIC PURPURA [None]
